FAERS Safety Report 19499953 (Version 1)
Quarter: 2021Q3

REPORT INFORMATION
  Report Type: Other
  Country: US (occurrence: US)
  Receive Date: 20210707
  Receipt Date: 20210707
  Transmission Date: 20211014
  Serious: No
  Sender: FDA-Public Use
  Company Number: US-ROCHE-2862514

PATIENT
  Sex: Female

DRUGS (2)
  1. OCREVUS [Suspect]
     Active Substance: OCRELIZUMAB
     Route: 042
     Dates: start: 20210514
  2. OCREVUS [Suspect]
     Active Substance: OCRELIZUMAB
     Indication: RELAPSING MULTIPLE SCLEROSIS
     Dosage: 300 MG IV DAY 1 AND DAY 5, 600 MG IV Q 6 MONTHS
     Route: 042
     Dates: start: 20210430

REACTIONS (3)
  - Urinary tract infection [Recovered/Resolved]
  - Alopecia [Unknown]
  - Fungal infection [Recovered/Resolved]
